FAERS Safety Report 10153979 (Version 1)
Quarter: 2014Q2

REPORT INFORMATION
  Report Type: Spontaneous
  Country: FR (occurrence: None)
  Receive Date: 20140502
  Receipt Date: 20140502
  Transmission Date: 20141212
  Serious: Yes (Life-Threatening)
  Sender: FDA-Public Use
  Company Number: 7284187

PATIENT
  Age: 72 Year
  Sex: Male

DRUGS (6)
  1. PREVISCAN (FLUINDIONE) (FLUINDIONE) [Suspect]
     Indication: THROMBOSIS PROPHYLAXIS
  2. LEVOTHYROX 75 (LEVOTHYROXINE SODIUM) (TABLET) (LEVOTHYROXINE SODIUM) [Suspect]
     Indication: THYROIDITIS
     Route: 048
     Dates: start: 2003
  3. METFORMIN (METFORMIN) (METFORMIN) [Suspect]
     Indication: TYPE 2 DIABETES MELLITUS
     Route: 048
     Dates: start: 200804
  4. CORDARONE [Suspect]
     Indication: ATRIAL FIBRILLATION
     Route: 048
  5. ATACAND [Suspect]
     Indication: HYPERTENSION
     Dates: start: 200904, end: 201112
  6. ALLOPURINOL [Suspect]
     Indication: HYPERURICAEMIA
     Route: 048

REACTIONS (1)
  - Metastasis [None]
